FAERS Safety Report 6749757-5 (Version None)
Quarter: 2010Q2

REPORT INFORMATION
  Report Type: 
  Country: None (occurrence: None)
  Receive Date: 20100527
  Receipt Date: 20100527
  Transmission Date: 20101027
  Serious: No
  Sender: FDA-Public Use
  Company Number: None

PATIENT
  Age: 40 Year
  Sex: Female
  Weight: 80.7403 kg

DRUGS (2)
  1. VIMPAT [Suspect]
     Indication: MULTIPLE SCLEROSIS
     Dosage: 100MG 2 X DAY ORALLY
     Route: 048
     Dates: start: 20091001, end: 20100301
  2. VIMPAT [Suspect]
     Indication: PAIN
     Dosage: 100MG 2 X DAY ORALLY
     Route: 048
     Dates: start: 20091001, end: 20100301

REACTIONS (1)
  - COUGH [None]
